FAERS Safety Report 8290312-6 (Version None)
Quarter: 2012Q2

REPORT INFORMATION
  Report Type: 
  Country: None (occurrence: None)
  Receive Date: 20120417
  Receipt Date: 20120404
  Transmission Date: 20120825
  Serious: Yes (Other)
  Sender: FDA-Public Use
  Company Number: CA-ROCHE-1052227

PATIENT

DRUGS (4)
  1. ALTEPLASE [Suspect]
     Indication: ISCHAEMIC STROKE
     Route: 042
  2. HEPARIN SODIUM [Suspect]
     Indication: ANTICOAGULANT THERAPY
     Route: 042
  3. FENTANYL CITRATE [Suspect]
     Indication: SEDATION
  4. MIDAZOLAM HYDROCHLORIDE [Suspect]
     Indication: SEDATION

REACTIONS (2)
  - ARRHYTHMIA [None]
  - HYPOTENSION [None]
